FAERS Safety Report 16510279 (Version 3)
Quarter: 2019Q3

REPORT INFORMATION
  Report Type: Report from Study
  Country: US (occurrence: US)
  Receive Date: 20190702
  Receipt Date: 20190809
  Transmission Date: 20191004
  Serious: Yes (Death, Hospitalization)
  Sender: FDA-Public Use
  Company Number: US-ROCHE-2344887

PATIENT
  Age: 70 Year
  Sex: Female
  Weight: 81.8 kg

DRUGS (3)
  1. LIPOSOMAL DOXORUBICIN HYDROCHLORIDE [Suspect]
     Active Substance: DOXORUBICIN HYDROCHLORIDE
     Indication: OVARIAN CANCER
     Dosage: OVER 60 MINUTES ON DAY 1?DATE OF MOST RECENT DOSE OF LIPOSOMAL DOXORUBICIN (74 MG) PRIOR TO EVENT ON
     Route: 042
     Dates: start: 20181108
  2. ATEZOLIZUMAB. [Suspect]
     Active Substance: ATEZOLIZUMAB
     Indication: OVARIAN CANCER
     Dosage: OVER 30-60 MINUTES ON DAYS 1 AND 15?DATE OF MOST RECENT DOSE OF ATEZOLIZUMAB (1600 MG) PRIOR TO EVEN
     Route: 042
     Dates: start: 20181108
  3. BEVACIZUMAB. [Suspect]
     Active Substance: BEVACIZUMAB
     Indication: OVARIAN CANCER
     Dosage: OVER 30-90 MINUTES ON DAYS 1 AND 15?DATE OF MOST RECENT DOSE OF BEVACIZUMAB (1540 MG) PRIOR TO EVENT
     Route: 042
     Dates: start: 20181108

REACTIONS (6)
  - Respiratory failure [Unknown]
  - Hypertension [Unknown]
  - Pneumonitis [Unknown]
  - Seizure [Unknown]
  - Sepsis [Unknown]
  - Gastric perforation [Fatal]

NARRATIVE: CASE EVENT DATE: 20190513
